FAERS Safety Report 8250908-4 (Version None)
Quarter: 2012Q2

REPORT INFORMATION
  Report Type: 
  Country: None (occurrence: None)
  Receive Date: 20120402
  Receipt Date: 20120328
  Transmission Date: 20120825
  Serious: Yes (Death, Life-Threatening, Hospitalization)
  Sender: FDA-Public Use
  Company Number: JP-BAYER-2011-019445

PATIENT
  Age: 81 Year
  Sex: Male

DRUGS (1)
  1. NEXAVAR [Suspect]
     Indication: RENAL CELL CARCINOMA
     Dosage: 200 MG, QD
     Route: 048

REACTIONS (4)
  - ERYTHEMA MULTIFORME [None]
  - PYREXIA [None]
  - MYELODYSPLASTIC SYNDROME [None]
  - DISSEMINATED INTRAVASCULAR COAGULATION [None]
